FAERS Safety Report 4725847-3 (Version None)
Quarter: 2005Q3

REPORT INFORMATION
  Report Type: 
  Country: None (occurrence: None)
  Receive Date: 20050725
  Receipt Date: 20050725
  Transmission Date: 20060218
  Serious: Yes (Hospitalization)
  Sender: FDA-Public Use
  Company Number: None

PATIENT
  Age: 62 Year
  Sex: Male
  Weight: 141 kg

DRUGS (6)
  1. WARFARIN  5 MG TAB [Suspect]
     Indication: ATRIAL FIBRILLATION
     Dosage: SEE B#5  ORAL
     Route: 048
  2. CIPRO [Suspect]
     Indication: URINARY TRACT INFECTION
     Dosage: 500 MG BID ORAL
     Route: 048
     Dates: start: 20040629, end: 20040705
  3. DIGOXIN [Concomitant]
  4. METOPROLOL [Concomitant]
  5. ROFECOXIB [Concomitant]
  6. RABEPRAZOLE SODIUM [Concomitant]

REACTIONS (3)
  - GASTROINTESTINAL HAEMORRHAGE [None]
  - INTERNATIONAL NORMALISED RATIO INCREASED [None]
  - URINARY TRACT INFECTION [None]
